FAERS Safety Report 5717414-X (Version None)
Quarter: 2008Q2

REPORT INFORMATION
  Report Type: 
  Country: None (occurrence: None)
  Receive Date: 20080424
  Receipt Date: 20080424
  Transmission Date: 20081010
  Serious: Yes (Other)
  Sender: FDA-Public Use
  Company Number: None

PATIENT
  Age: 60 Year
  Sex: Female
  Weight: 63.9572 kg

DRUGS (1)
  1. BONIVA [Suspect]
     Indication: ILL-DEFINED DISORDER
     Dosage: 1 PER MONTH
     Dates: start: 20070908, end: 20070908

REACTIONS (5)
  - ABDOMINAL PAIN UPPER [None]
  - ASTHENIA [None]
  - DIARRHOEA [None]
  - MALAISE [None]
  - VOMITING [None]
